FAERS Safety Report 9418199 (Version 2)
Quarter: 2013Q3

REPORT INFORMATION
  Report Type: Spontaneous
  Country: BR (occurrence: BR)
  Receive Date: 20130724
  Receipt Date: 20130820
  Transmission Date: 20140515
  Serious: Yes (Other)
  Sender: FDA-Public Use
  Company Number: BR-ABBOTT-13P-020-1123289-00

PATIENT
  Sex: Male
  Weight: 73 kg

DRUGS (10)
  1. HUMIRA [Suspect]
     Indication: CROHN^S DISEASE
     Dosage: WEEK 0
     Route: 058
     Dates: start: 20130520, end: 20130520
  2. HUMIRA [Suspect]
     Dosage: WEEK 2
     Route: 058
  3. HUMIRA [Suspect]
     Route: 058
  4. DEPAKENE [Concomitant]
     Indication: CONVULSION
     Route: 048
     Dates: start: 1997
  5. CARBAMAZEPINE [Concomitant]
     Indication: CONVULSION
     Dosage: 2 TABLETS AT MORNING AND 4 TABLETS AT NIGHT
     Route: 048
     Dates: start: 1997
  6. HALOPERIDOL [Concomitant]
     Indication: DEPRESSION
     Dosage: AT MORNING AND AT NIGHT
     Route: 048
     Dates: start: 1997
  7. FLUOXETINE [Concomitant]
     Indication: DEPRESSION
     Dosage: AT MORNING AND AT NIGHT
     Route: 048
     Dates: start: 1997
  8. AMITRIPTYLINE [Concomitant]
     Indication: SLEEP DISORDER THERAPY
     Route: 048
     Dates: start: 1997
  9. CLONAZEPAM [Concomitant]
     Indication: DEPRESSION
     Dosage: QHS
     Route: 048
     Dates: start: 1997
  10. CHLORPROMAZINE [Concomitant]
     Indication: DEPRESSION
     Route: 048
     Dates: start: 1997

REACTIONS (1)
  - Convulsion [Unknown]
